FAERS Safety Report 6259190-0 (Version None)
Quarter: 2009Q3

REPORT INFORMATION
  Report Type: 
  Country: None (occurrence: None)
  Receive Date: 20090707
  Receipt Date: 20090630
  Transmission Date: 20100115
  Serious: Yes (Life-Threatening, Hospitalization)
  Sender: FDA-Public Use
  Company Number: JP-AVENTIS-200911437JP

PATIENT
  Age: 52 Year
  Sex: Male
  Weight: 65.5 kg

DRUGS (9)
  1. TAXOTERE [Suspect]
     Route: 041
     Dates: start: 20090520, end: 20090520
  2. LAC B [Concomitant]
     Route: 048
     Dates: start: 20090116, end: 20090526
  3. GRANDAXIN [Concomitant]
     Indication: DYSTONIA
     Route: 048
     Dates: start: 20090304, end: 20090526
  4. GRANDAXIN [Concomitant]
     Indication: DIZZINESS
     Route: 048
     Dates: start: 20090304, end: 20090526
  5. NAIXAN                             /00256201/ [Concomitant]
     Indication: CANCER PAIN
     Route: 048
     Dates: start: 20090401, end: 20090526
  6. ALLEGRA [Concomitant]
     Indication: ECZEMA
     Route: 048
     Dates: start: 20090519, end: 20090526
  7. KYTRIL                             /01178101/ [Concomitant]
     Indication: PREMEDICATION
     Dates: start: 20090520, end: 20090520
  8. DECADRON [Concomitant]
     Indication: PREMEDICATION
     Dates: start: 20090520, end: 20090520
  9. TARCEVA                            /01611401/ [Concomitant]
     Dates: start: 20081125, end: 20090514

REACTIONS (4)
  - ALANINE AMINOTRANSFERASE INCREASED [None]
  - ASPARTATE AMINOTRANSFERASE INCREASED [None]
  - BLOOD CREATINE PHOSPHOKINASE INCREASED [None]
  - HYPERSENSITIVITY [None]
